FAERS Safety Report 8845715 (Version 1)
Quarter: 2012Q4

REPORT INFORMATION
  Report Type: 
  Country: CA (occurrence: CA)
  Receive Date: 20121017
  Receipt Date: 20121017
  Transmission Date: 20130627
  Serious: Yes (Other)
  Sender: FDA-Public Use
  Company Number: PHMT2007CA00900

PATIENT
  Sex: Male

DRUGS (2)
  1. SANDOSTATIN LAR [Suspect]
     Indication: CARCINOID TUMOUR
     Route: 030
     Dates: start: 20060517
  2. SANDOSTATIN LAR [Suspect]
     Dosage: 40 mg, QW4
     Route: 030
     Dates: start: 200701

REACTIONS (6)
  - Renal mass [Unknown]
  - Pain [Unknown]
  - Malaise [Unknown]
  - Myalgia [Unknown]
  - Diarrhoea [Unknown]
  - Nausea [Unknown]
